FAERS Safety Report 12842670 (Version 2)
Quarter: 2016Q4

REPORT INFORMATION
  Report Type: Report from Study
  Country: US (occurrence: US)
  Receive Date: 20161013
  Receipt Date: 20161111
  Transmission Date: 20170207
  Serious: Yes (Death)
  Sender: FDA-Public Use
  Company Number: PHEH2016US026314

PATIENT
  Sex: Male
  Weight: 58.5 kg

DRUGS (1)
  1. EXELON PATCH [Suspect]
     Active Substance: RIVASTIGMINE
     Indication: DEMENTIA
     Dosage: 13.3 MG, QD [PATCH 15 (CM2)]
     Route: 062
     Dates: start: 20150323

REACTIONS (1)
  - Death [Fatal]
